FAERS Safety Report 6204041-3 (Version None)
Quarter: 2009Q2

REPORT INFORMATION
  Report Type: 
  Country: None (occurrence: None)
  Receive Date: 20090518
  Receipt Date: 20090213
  Transmission Date: 20091009
  Serious: No
  Sender: FDA-Public Use
  Company Number: WAES 0902USA02436

PATIENT
  Age: 60 Year
  Sex: Male

DRUGS (4)
  1. JANUVIA [Suspect]
     Indication: TYPE 2 DIABETES MELLITUS
     Dosage: 100 MG/DAILY/PO
     Route: 048
  2. ACTOS [Concomitant]
  3. ZIAC [Concomitant]
  4. METFORMIN HCL [Concomitant]

REACTIONS (1)
  - WEIGHT DECREASED [None]
